FAERS Safety Report 20919579 (Version 1)
Quarter: 2022Q2

REPORT INFORMATION
  Report Type: Spontaneous
  Country: US (occurrence: US)
  Receive Date: 20220606
  Receipt Date: 20220606
  Transmission Date: 20220721
  Serious: No
  Sender: FDA-Public Use
  Company Number: US-drreddys-SPO/USA/22/0150623

PATIENT
  Age: 17 Year

DRUGS (2)
  1. ACCUTANE [Suspect]
     Active Substance: ISOTRETINOIN
     Indication: Product used for unknown indication
     Dosage: RMA ISSUE DATE: 16 FEBRUARY 2022 02:54:54 PM, 23 MARCH 2022 05:34:11 PM AND 21 APRIL 2022 11:06:04 A
  2. ACCUTANE [Suspect]
     Active Substance: ISOTRETINOIN
     Dosage: RMA ISSUE DATE : 10 JANUARY 2022 03:45:25 PM

REACTIONS (1)
  - Treatment noncompliance [Unknown]
